FAERS Safety Report 17550854 (Version 1)
Quarter: 2020Q1

REPORT INFORMATION
  Report Type: Spontaneous
  Country: US (occurrence: US)
  Receive Date: 20200309
  Receipt Date: 20200309
  Transmission Date: 20200409
  Serious: Yes (Death, Hospitalization)
  Sender: FDA-Public Use
  Company Number: None

PATIENT
  Age: 64 Year
  Sex: Male
  Weight: 80 kg

DRUGS (1)
  1. SORAFENIB [Suspect]
     Active Substance: SORAFENIB
     Indication: HEPATOCELLULAR CARCINOMA
     Route: 048
     Dates: start: 20171005, end: 20190821

REACTIONS (6)
  - Pain [None]
  - Hypotension [None]
  - Dyspnoea [None]
  - General physical health deterioration [None]
  - Hypoxia [None]
  - Unresponsive to stimuli [None]

NARRATIVE: CASE EVENT DATE: 20200304
